FAERS Safety Report 7056012-5 (Version None)
Quarter: 2010Q4

REPORT INFORMATION
  Report Type: 
  Country: None (occurrence: None)
  Receive Date: 20101021
  Receipt Date: 20101020
  Transmission Date: 20110411
  Serious: Yes (Hospitalization, Congenital Anomaly)
  Sender: FDA-Public Use
  Company Number: A0887735A

PATIENT
  Sex: Female
  Weight: 2.2 kg

DRUGS (2)
  1. PAXIL [Suspect]
     Dates: start: 20080801
  2. PRENATAL VITAMINS [Concomitant]

REACTIONS (5)
  - ATRIAL SEPTAL DEFECT [None]
  - CONGENITAL HYDRONEPHROSIS [None]
  - DRUG EXPOSURE DURING PREGNANCY [None]
  - PATENT DUCTUS ARTERIOSUS [None]
  - TRANSPOSITION OF THE GREAT VESSELS [None]
